FAERS Safety Report 20394908 (Version 1)
Quarter: 2022Q1

REPORT INFORMATION
  Report Type: Report from Study
  Country: FR (occurrence: FR)
  Receive Date: 20220130
  Receipt Date: 20220130
  Transmission Date: 20220424
  Serious: Yes (Other)
  Sender: FDA-Public Use
  Company Number: FR-JAZZ-2017-FR-013271

PATIENT

DRUGS (1)
  1. DEFITELIO [Suspect]
     Active Substance: DEFIBROTIDE SODIUM
     Indication: Mesenteric venous occlusion
     Dosage: UNK

REACTIONS (2)
  - Liver transplant [Unknown]
  - Drug ineffective for unapproved indication [Unknown]
